FAERS Safety Report 25159028 (Version 1)
Quarter: 2025Q2

REPORT INFORMATION
  Report Type: Spontaneous
  Country: GB (occurrence: GB)
  Receive Date: 20250404
  Receipt Date: 20250404
  Transmission Date: 20250716
  Serious: Yes (Death)
  Sender: AUROBINDO
  Company Number: GB-MHRA-MED-202503191349425140-ZKWJR

PATIENT
  Age: 42 Year
  Sex: Female

DRUGS (1)
  1. TRAMADOL [Suspect]
     Active Substance: TRAMADOL
     Indication: Product used for unknown indication
     Route: 065

REACTIONS (1)
  - Emotional distress [Fatal]
